FAERS Safety Report 15694429 (Version 1)
Quarter: 2018Q4

REPORT INFORMATION
  Report Type: Spontaneous
  Country: BE (occurrence: BE)
  Receive Date: 20181206
  Receipt Date: 20181206
  Transmission Date: 20190205
  Serious: Yes (Other)
  Sender: FDA-Public Use
  Company Number: BE-MYLANLABS-2018M1088142

PATIENT
  Sex: Male

DRUGS (12)
  1. METHYLPREDNISOLONE. [Suspect]
     Active Substance: METHYLPREDNISOLONE
     Dosage: ORAL TAPERING
     Route: 048
     Dates: start: 2012
  2. GOLIMUMAB [Suspect]
     Active Substance: GOLIMUMAB
     Indication: BEHCET^S SYNDROME
     Route: 065
     Dates: start: 201702, end: 201706
  3. TOCILIZUMAB. [Suspect]
     Active Substance: TOCILIZUMAB
     Indication: BEHCET^S SYNDROME
     Route: 065
     Dates: start: 201609, end: 201612
  4. AZATHIOPRINE. [Suspect]
     Active Substance: AZATHIOPRINE
     Indication: BEHCET^S SYNDROME
     Route: 065
     Dates: start: 201209
  5. AZATHIOPRINE. [Suspect]
     Active Substance: AZATHIOPRINE
     Dosage: 200 MILLIGRAM, QD
     Route: 065
  6. METHYLPREDNISOLONE. [Suspect]
     Active Substance: METHYLPREDNISOLONE
     Dosage: RECEIVED ADDITIONALLY FOR TWO TIMES AT THE SAME DOSAGE
     Route: 042
  7. METHYLPREDNISOLONE. [Suspect]
     Active Substance: METHYLPREDNISOLONE
     Dosage: 8 MILLIGRAM
     Route: 065
  8. METHYLPREDNISOLONE. [Suspect]
     Active Substance: METHYLPREDNISOLONE
     Indication: BEHCET^S SYNDROME
     Dosage: IV PULSE THERAPY FOR 5 DAYS, FOLLOWED BY SLOW ORAL TAPERING
     Route: 042
     Dates: start: 2012
  9. METHYLPREDNISOLONE. [Suspect]
     Active Substance: METHYLPREDNISOLONE
     Dosage: 12 MILLIGRAM
     Route: 065
  10. INFLIXIMAB [Suspect]
     Active Substance: INFLIXIMAB
     Indication: BEHCET^S SYNDROME
     Route: 065
     Dates: start: 201410, end: 201606
  11. AZATHIOPRINE. [Suspect]
     Active Substance: AZATHIOPRINE
     Dosage: 100 MILLIGRAM
     Route: 065
     Dates: start: 201410
  12. CYCLOPHOSPHAMIDE. [Suspect]
     Active Substance: CYCLOPHOSPHAMIDE
     Indication: BEHCET^S SYNDROME
     Route: 042
     Dates: start: 201402, end: 201409

REACTIONS (1)
  - Drug ineffective [Unknown]
